FAERS Safety Report 16678276 (Version 1)
Quarter: 2019Q3

REPORT INFORMATION
  Report Type: Spontaneous
  Country: US (occurrence: US)
  Receive Date: 20190806
  Receipt Date: 20190806
  Transmission Date: 20191004
  Serious: No
  Sender: FDA-Public Use
  Company Number: None

PATIENT
  Age: 36 Year
  Sex: Male
  Weight: 67 kg

DRUGS (1)
  1. INJECTAFER [Suspect]
     Active Substance: FERRIC CARBOXYMALTOSE
     Indication: IRON DEFICIENCY ANAEMIA
     Dosage: ?          OTHER FREQUENCY:ONCE A WEEK X2;?
     Route: 042
     Dates: start: 20190729, end: 20190805

REACTIONS (3)
  - Hypoaesthesia oral [None]
  - Tongue discomfort [None]
  - Infusion related reaction [None]

NARRATIVE: CASE EVENT DATE: 20190805
